FAERS Safety Report 9117275 (Version 1)
Quarter: 2013Q1

REPORT INFORMATION
  Report Type: Spontaneous
  Country: US (occurrence: US)
  Receive Date: 20130225
  Receipt Date: 20130225
  Transmission Date: 20140127
  Serious: Yes (Other)
  Sender: FDA-Public Use
  Company Number: US-JNJFOC-20130209695

PATIENT
  Age: 78 Year
  Sex: Male

DRUGS (1)
  1. XARELTO [Suspect]
     Indication: ATRIAL FLUTTER
     Route: 048

REACTIONS (2)
  - Pulmonary embolism [Unknown]
  - Deep vein thrombosis [Unknown]
